FAERS Safety Report 20352292 (Version 1)
Quarter: 2022Q1

REPORT INFORMATION
  Report Type: Report from Study
  Country: CA (occurrence: CA)
  Receive Date: 20220119
  Receipt Date: 20220119
  Transmission Date: 20220424
  Serious: Yes (Other)
  Sender: FDA-Public Use
  Company Number: CA-JNJFOC-20211242294

PATIENT
  Age: 36 Year
  Sex: Female
  Weight: 135 kg

DRUGS (1)
  1. REMICADE [Suspect]
     Active Substance: INFLIXIMAB
     Indication: Hidradenitis
     Dosage: EXPIRY DATE :31-JUL-2024?STRENGTH:676
     Route: 042
     Dates: start: 20180618

REACTIONS (2)
  - Hidradenitis [Not Recovered/Not Resolved]
  - Chest pain [Recovered/Resolved]

NARRATIVE: CASE EVENT DATE: 20211129
